FAERS Safety Report 16064495 (Version 2)
Quarter: 2020Q1

REPORT INFORMATION
  Report Type: Spontaneous
  Country: FR (occurrence: FR)
  Receive Date: 20190312
  Receipt Date: 20200213
  Transmission Date: 20200409
  Serious: Yes (Hospitalization)
  Sender: FDA-Public Use
  Company Number: FR-MYLANLABS-2019M1022529

PATIENT
  Age: 58 Year
  Sex: Female
  Weight: 44.5 kg

DRUGS (19)
  1. CERUBIDINE [Suspect]
     Active Substance: DAUNORUBICIN HYDROCHLORIDE
     Indication: ACUTE MYELOID LEUKAEMIA
     Dosage: 60 MG/M2, UNK
     Route: 041
     Dates: start: 20180319, end: 20190321
  2. MERONEM [Concomitant]
     Active Substance: MEROPENEM
     Indication: LUNG DISORDER
     Dosage: 6 GRAM, QD
     Route: 041
     Dates: start: 20180726
  3. MERONEM ZENECA [Suspect]
     Active Substance: MEROPENEM
     Indication: LUNG DISORDER
     Dosage: 6 GRAM, QD
     Route: 041
     Dates: start: 20180726
  4. RYDAPT [Suspect]
     Active Substance: MIDOSTAURIN
     Dosage: 50MG / D FROM J8 TO J21
     Route: 048
     Dates: start: 20180327, end: 20180814
  5. ARACYTINE [Suspect]
     Active Substance: CYTARABINE
     Indication: ACUTE MYELOID LEUKAEMIA
     Dosage: 0MG / M? FROM 19/03 TO 26/03/18, THEN 3000 MG / M?
     Route: 041
     Dates: start: 20180319, end: 20180815
  6. ZYVOXID [Concomitant]
     Active Substance: LINEZOLID
     Indication: PRODUCT USED FOR UNKNOWN INDICATION
     Dosage: UNK
     Route: 065
     Dates: start: 20180713, end: 20180730
  7. HYDROXYZINE [Concomitant]
     Active Substance: HYDROXYZINE HYDROCHLORIDE
     Indication: PRODUCT USED FOR UNKNOWN INDICATION
     Dosage: UNK
     Route: 065
  8. MAGNESIUM                          /07507001/ [Concomitant]
     Indication: PRODUCT USED FOR UNKNOWN INDICATION
     Dosage: UNK
     Route: 065
  9. OROZAMUDOL 50 MG, COMPRIM? ORODISPERSIBLE [Suspect]
     Active Substance: TRAMADOL
     Indication: HEADACHE
     Dosage: 100 MILLIGRAM, TOTAL
     Route: 048
     Dates: start: 20180815, end: 20180815
  10. PANTOPRAZOLE MYLAN [Concomitant]
     Active Substance: PANTOPRAZOLE SODIUM
     Indication: PRODUCT USED FOR UNKNOWN INDICATION
     Dosage: UNK
  11. NEBIVOLOL SANDOZ [Concomitant]
     Active Substance: NEBIVOLOL
     Indication: PRODUCT USED FOR UNKNOWN INDICATION
     Dosage: UNK
     Route: 065
  12. MIANSERINE ARROW [Suspect]
     Active Substance: MIANSERIN HYDROCHLORIDE
     Indication: DEPRESSION
     Dosage: 1 DOSAGE FORM, QD
     Route: 048
     Dates: start: 20180808, end: 20180816
  13. RYDAPT [Suspect]
     Active Substance: MIDOSTAURIN
     Indication: ACUTE MYELOID LEUKAEMIA
     Dosage: 50MG / D FROM J8 TO J21
     Route: 048
     Dates: start: 20180327, end: 20180816
  14. ARACYTINE [Suspect]
     Active Substance: CYTARABINE
     Dosage: 3000 MILLIMOLE PER SQUARE METRE
     Route: 041
     Dates: start: 20180326
  15. CRESEMBA [Concomitant]
     Active Substance: ISAVUCONAZONIUM SULFATE
     Indication: PRODUCT USED FOR UNKNOWN INDICATION
     Dosage: UNK
     Route: 065
     Dates: start: 20180717, end: 20180727
  16. ARACYTINE [Suspect]
     Active Substance: CYTARABINE
     Dosage: 200 MG/M2, UNK
     Route: 041
     Dates: start: 20180627
  17. ARACYTINE [Suspect]
     Active Substance: CYTARABINE
     Dosage: UNK
     Route: 041
     Dates: start: 20180319
  18. AMBISOME [Concomitant]
     Active Substance: AMPHOTERICIN B
     Indication: LUNG DISORDER
     Dosage: 180 MILLIGRAM
     Route: 041
     Dates: start: 20180727, end: 20180817
  19. PARACETAMOL [Concomitant]
     Active Substance: ACETAMINOPHEN
     Indication: PRODUCT USED FOR UNKNOWN INDICATION
     Dosage: UNK
     Route: 065

REACTIONS (5)
  - Dysarthria [Recovering/Resolving]
  - Cerebellar syndrome [Recovering/Resolving]
  - Cardiac failure [Not Recovered/Not Resolved]
  - Echocardiogram abnormal [Not Recovered/Not Resolved]
  - Vertigo [Recovering/Resolving]

NARRATIVE: CASE EVENT DATE: 20180730
